FAERS Safety Report 15764600 (Version 2)
Quarter: 2020Q3

REPORT INFORMATION
  Report Type: Spontaneous
  Country: NL (occurrence: NL)
  Receive Date: 20181227
  Receipt Date: 20200829
  Transmission Date: 20201102
  Serious: Yes (Congenital Anomaly, Other)
  Sender: FDA-Public Use
  Company Number: NL-AUROBINDO-AUR-APL-2018-062739

PATIENT
  Sex: Male
  Weight: 4 kg

DRUGS (1)
  1. CETIRIZINE FILM?COATED TABLETS [Suspect]
     Active Substance: CETIRIZINE HYDROCHLORIDE
     Indication: HYPERSENSITIVITY
     Dosage: 10 MILLIGRAM, EVERY OTHER DAY ?(10 MG, EV 2 DAYS (QOD))
     Route: 064

REACTIONS (5)
  - Micropenis [Unknown]
  - Foetal exposure during pregnancy [Unknown]
  - Maternal exposure during pregnancy [Unknown]
  - Congenital genital malformation [Unknown]
  - Cerebral dysgenesis [Unknown]
